FAERS Safety Report 6519659-8 (Version None)
Quarter: 2009Q4

REPORT INFORMATION
  Report Type: 
  Country: None (occurrence: None)
  Receive Date: 20091228
  Receipt Date: 20091217
  Transmission Date: 20100525
  Serious: Yes (Other)
  Sender: FDA-Public Use
  Company Number: JP-PFIZER INC-2009312917

PATIENT

DRUGS (1)
  1. SULPERAZON [Suspect]
     Route: 042

REACTIONS (1)
  - HYPOGLYCAEMIA [None]
